FAERS Safety Report 6133335-5 (Version None)
Quarter: 2009Q1

REPORT INFORMATION
  Report Type: 
  Country: None (occurrence: None)
  Receive Date: 20090326
  Receipt Date: 20090203
  Transmission Date: 20090719
  Serious: Yes (Hospitalization)
  Sender: FDA-Public Use
  Company Number: FR-BAXTER-2009BH001979

PATIENT
  Age: 68 Year
  Sex: Male

DRUGS (14)
  1. ENDOXAN BAXTER [Suspect]
     Indication: BURKITT'S LYMPHOMA
     Route: 042
     Dates: start: 20090107, end: 20090109
  2. PREDNISOLONE [Suspect]
     Indication: BURKITT'S LYMPHOMA
     Route: 048
     Dates: start: 20090106, end: 20090110
  3. ONCOVIN [Suspect]
     Indication: BURKITT'S LYMPHOMA
     Route: 042
     Dates: start: 20090106, end: 20090106
  4. METHOTREXATE [Suspect]
     Indication: BURKITT'S LYMPHOMA
     Route: 042
     Dates: start: 20090106, end: 20090109
  5. METHOTREXATE [Suspect]
     Route: 065
     Dates: start: 20090107, end: 20090107
  6. METHOTREXATE [Suspect]
     Route: 065
     Dates: start: 20090111, end: 20090111
  7. DOXORUBICIN HCL [Suspect]
     Indication: BURKITT'S LYMPHOMA
     Route: 042
     Dates: start: 20090107, end: 20090107
  8. TRIVASTAL [Concomitant]
  9. KLIPAL [Concomitant]
  10. KETOPROFEN [Concomitant]
  11. TAZOCILLINE [Concomitant]
     Dates: start: 20090106
  12. VANCOMYCINE [Concomitant]
     Dates: start: 20090106
  13. TRIFLUCAN [Concomitant]
     Dates: start: 20090106
  14. AMIKLIN [Concomitant]
     Dates: start: 20090106

REACTIONS (2)
  - FEBRILE BONE MARROW APLASIA [None]
  - SEPTIC SHOCK [None]
